FAERS Safety Report 8026214-X (Version None)
Quarter: 2012Q1

REPORT INFORMATION
  Report Type: 
  Country: None (occurrence: None)
  Receive Date: 20120105
  Receipt Date: 20110304
  Transmission Date: 20120608
  Serious: No
  Sender: FDA-Public Use
  Company Number: US-ABBOTT-11P-163-0709966-00

PATIENT
  Sex: Female
  Weight: 104.42 kg

DRUGS (6)
  1. SYNTHROID [Suspect]
     Indication: THYROIDECTOMY
     Dosage: 400MCG DAILY
  2. BUMETADINE [Concomitant]
     Indication: PRODUCT USED FOR UNKNOWN INDICATION
  3. ACIPHEX [Concomitant]
     Indication: GASTROOESOPHAGEAL REFLUX DISEASE
     Dosage: 20MG DAILY DOSE
  4. CALCITRIOL [Concomitant]
     Indication: PRODUCT USED FOR UNKNOWN INDICATION
  5. DIURENIUM [Concomitant]
     Indication: PRODUCT USED FOR UNKNOWN INDICATION
     Dosage: 50MG DAILY DOSE
  6. COUMADIN [Concomitant]
     Indication: HEART VALVE REPLACEMENT

REACTIONS (3)
  - HYPOTHYROIDISM [None]
  - DRUG INEFFECTIVE [None]
  - HEART RATE INCREASED [None]
